FAERS Safety Report 8169360-2 (Version None)
Quarter: 2012Q1

REPORT INFORMATION
  Report Type: 
  Country: None (occurrence: None)
  Receive Date: 20120222
  Receipt Date: 20120208
  Transmission Date: 20120608
  Serious: Yes (Hospitalization)
  Sender: FDA-Public Use
  Company Number: DSM-2011-00996

PATIENT
  Age: 84 Year
  Sex: Female

DRUGS (6)
  1. SIMVASTATIN [Concomitant]
  2. ASPIRIN [Concomitant]
  3. NEBIVOLOL [Suspect]
     Indication: PRODUCT USED FOR UNKNOWN INDICATION
     Dosage: 2.5 MG, ORAL
     Route: 048
  4. OLMESARTAN MEDOXOMIL/AMLODIPINE BESYLATE/HYDROCHLOROTHIAZIDE [Suspect]
     Indication: ESSENTIAL HYPERTENSION
     Dosage: 10/2.5/6.25 MG, ORAL
     Route: 048
     Dates: start: 20110629
  5. CLOPIDOGREL [Concomitant]
  6. CITALOPRAM HYDROBROMIDE [Concomitant]

REACTIONS (6)
  - CONTUSION [None]
  - LACERATION [None]
  - WOUND HAEMORRHAGE [None]
  - SYNCOPE [None]
  - LOSS OF CONSCIOUSNESS [None]
  - HEADACHE [None]
